FAERS Safety Report 12340878 (Version 1)
Quarter: 2016Q2

REPORT INFORMATION
  Report Type: Spontaneous
  Country: US (occurrence: US)
  Receive Date: 20160506
  Receipt Date: 20160506
  Transmission Date: 20160815
  Serious: No
  Sender: FDA-Public Use
  Company Number: US-PFIZER INC-2016200691

PATIENT
  Sex: Female

DRUGS (2)
  1. PROCARDIA XL [Suspect]
     Active Substance: NIFEDIPINE
     Dosage: 90 MG, UNK
  2. PROCARDIA XL [Suspect]
     Active Substance: NIFEDIPINE
     Dosage: 60 MG, UNK

REACTIONS (2)
  - Haemorrhoids [Unknown]
  - Joint swelling [Unknown]
